FAERS Safety Report 8588757-X (Version None)
Quarter: 2012Q3

REPORT INFORMATION
  Report Type: 
  Country: None (occurrence: None)
  Receive Date: 20120813
  Receipt Date: 20120806
  Transmission Date: 20120928
  Serious: Yes (Other)
  Sender: FDA-Public Use
  Company Number: JP-VERTEX PHARMACEUTICALS INC.-AE-2012-011827

PATIENT
  Age: 53 Year
  Sex: Male

DRUGS (6)
  1. PEG-INTRON [Concomitant]
     Route: 058
     Dates: start: 20120703
  2. URSO 250 [Concomitant]
     Route: 046
  3. TELAVIC (TELAPREVIR) [Suspect]
     Indication: HEPATITIS C
     Route: 048
     Dates: start: 20120605
  4. RIBAVIRIN [Concomitant]
     Indication: HEPATITIS C
     Route: 048
  5. PEG-INTRON [Concomitant]
     Route: 058
     Dates: start: 20120710
  6. PEG-INTRON [Concomitant]
     Indication: HEPATITIS C
     Route: 058
     Dates: start: 20120605

REACTIONS (5)
  - RENAL IMPAIRMENT [None]
  - DECREASED APPETITE [None]
  - PLATELET COUNT DECREASED [None]
  - THIRST [None]
  - RASH [None]
